FAERS Safety Report 7989110-X (Version None)
Quarter: 2011Q4

REPORT INFORMATION
  Report Type: 
  Country: None (occurrence: None)
  Receive Date: 20111219
  Receipt Date: 20111209
  Transmission Date: 20120403
  Serious: Yes (Other)
  Sender: FDA-Public Use
  Company Number: US-US-EMD SERONO, INC.-7100915

PATIENT
  Sex: Female

DRUGS (3)
  1. CHEMOTHERAPY [Concomitant]
  2. REBIF [Suspect]
     Indication: MULTIPLE SCLEROSIS
     Route: 058
     Dates: start: 20110217
  3. STEROIDS [Concomitant]

REACTIONS (2)
  - PNEUMONIA [None]
  - MULTIPLE SCLEROSIS [None]
